FAERS Safety Report 25535495 (Version 1)
Quarter: 2025Q3

REPORT INFORMATION
  Report Type: Report from Study
  Country: US (occurrence: US)
  Receive Date: 20250709
  Receipt Date: 20250709
  Transmission Date: 20251020
  Serious: Yes (Death, Other)
  Sender: TAKEDA
  Company Number: US-TAKEDA-2025TUS062070

PATIENT
  Age: 74 Year
  Sex: Male

DRUGS (1)
  1. PENTASA [Suspect]
     Active Substance: MESALAMINE
     Indication: Product used for unknown indication
     Dosage: UNK UNK, TID
     Dates: start: 202501

REACTIONS (1)
  - Death [Fatal]

NARRATIVE: CASE EVENT DATE: 20250707
